FAERS Safety Report 11770572 (Version 1)
Quarter: 2015Q4

REPORT INFORMATION
  Report Type: Report from Study
  Country: DE (occurrence: DE)
  Receive Date: 20151123
  Receipt Date: 20151123
  Transmission Date: 20160304
  Serious: Yes (Hospitalization)
  Sender: FDA-Public Use
  Company Number: DE-ABBVIE-15P-062-1501825-00

PATIENT
  Age: 42 Year
  Sex: Male
  Weight: 85 kg

DRUGS (2)
  1. ISENTRESS [Suspect]
     Active Substance: RALTEGRAVIR POTASSIUM
     Indication: PRODUCT USED FOR UNKNOWN INDICATION
     Route: 065
     Dates: start: 20110726
  2. KALETRA [Suspect]
     Active Substance: LOPINAVIR\RITONAVIR
     Indication: HIV INFECTION
     Route: 065
     Dates: start: 20110726

REACTIONS (9)
  - Pneumonia [Not Recovered/Not Resolved]
  - White matter lesion [Unknown]
  - AIDS dementia complex [Unknown]
  - Hypertensive crisis [Recovered/Resolved]
  - Pulmonary oedema [Unknown]
  - Metabolic disorder [Recovered/Resolved]
  - Hyponatraemia [Unknown]
  - Hyperglycaemia [Unknown]
  - Seizure [Recovered/Resolved]

NARRATIVE: CASE EVENT DATE: 20121001
